FAERS Safety Report 8593072-4 (Version None)
Quarter: 2012Q3

REPORT INFORMATION
  Report Type: 
  Country: None (occurrence: None)
  Receive Date: 20120814
  Receipt Date: 20120806
  Transmission Date: 20120928
  Serious: Yes (Other)
  Sender: FDA-Public Use
  Company Number: JP-GLAXOSMITHKLINE-B0821900A

PATIENT

DRUGS (1)
  1. VALACYCLOVIR HYDROCHLORIDE [Suspect]
     Dosage: 500MG PER DAY
     Route: 048

REACTIONS (2)
  - VERTIGO [None]
  - TOXICITY TO VARIOUS AGENTS [None]
